FAERS Safety Report 7098717-6 (Version None)
Quarter: 2010Q4

REPORT INFORMATION
  Report Type: 
  Country: None (occurrence: None)
  Receive Date: 20101104
  Receipt Date: 20101018
  Transmission Date: 20110411
  Serious: Yes (Hospitalization)
  Sender: FDA-Public Use
  Company Number: CV20100590

PATIENT
  Sex: Female

DRUGS (2)
  1. RINGER'S [Suspect]
     Indication: ACIDOSIS
     Dosage: (500 ML,4 INFUSION CYCLES) INTRAVENOUS DRIP
     Route: 041
  2. NATRIUMHYDROGENCARBONAT (SODIUM BICARBONATE) (SODIUM BICARBONATE) [Suspect]
     Indication: ACIDOSIS
     Dosage: (4 NIFUSION CYCLES) INTRAVENOUS (NO OTHERWISE SPECIFIED)
     Route: 042

REACTIONS (4)
  - CHEST PAIN [None]
  - DYSPNOEA [None]
  - ELECTROLYTE IMBALANCE [None]
  - HYPOKALAEMIA [None]
